FAERS Safety Report 8464056 (Version 2)
Quarter: 2012Q4

REPORT INFORMATION
  Report Type: 
  Country: US (occurrence: US)
  Receive Date: 20120316
  Receipt Date: 20121014
  Transmission Date: 20130627
  Serious: Yes (Hospitalization)
  Sender: FDA-Public Use
  Company Number: US-US-EMD SERONO, INC.-7118520

PATIENT
  Age: 37 Year
  Sex: Female

DRUGS (1)
  1. REBIF [Suspect]
     Indication: MULTIPLE SCLEROSIS
     Route: 058
     Dates: start: 20110429

REACTIONS (5)
  - Urinary tract infection [Recovered/Resolved]
  - Loss of consciousness [Recovered/Resolved]
  - Abasia [Recovered/Resolved]
  - Fungal infection [Recovered/Resolved]
  - Malaise [Recovered/Resolved]
